FAERS Safety Report 14817411 (Version 1)
Quarter: 2018Q2

REPORT INFORMATION
  Report Type: Report from Study
  Country: US (occurrence: US)
  Receive Date: 20180426
  Receipt Date: 20180426
  Transmission Date: 20180711
  Serious: No
  Sender: FDA-Public Use
  Company Number: US-AMGEN-USASL2018036355

PATIENT
  Age: 74 Year
  Sex: Female

DRUGS (1)
  1. REPATHA [Suspect]
     Active Substance: EVOLOCUMAB
     Indication: BLOOD CHOLESTEROL INCREASED
     Dosage: 140 MG, Q2WK
     Route: 065

REACTIONS (12)
  - Dry eye [Unknown]
  - Arthralgia [Unknown]
  - Pain [Unknown]
  - Lethargy [Unknown]
  - Fatigue [Unknown]
  - Trichorrhexis [Unknown]
  - Abdominal distension [Unknown]
  - Pollakiuria [Unknown]
  - Pain in extremity [Unknown]
  - Myalgia [Unknown]
  - Skin tightness [Unknown]
  - Neuralgia [Unknown]
